FAERS Safety Report 5133457-1 (Version None)
Quarter: 2006Q4

REPORT INFORMATION
  Report Type: 
  Country: None (occurrence: None)
  Receive Date: 20061024
  Receipt Date: 20061018
  Transmission Date: 20070319
  Serious: Yes (Hospitalization)
  Sender: FDA-Public Use
  Company Number: AU-BRISTOL-MYERS SQUIBB COMPANY-13544929

PATIENT
  Age: 29 Year
  Sex: Male

DRUGS (1)
  1. ABILIFY [Suspect]
     Dosage: 15 MG ON 09-MAR-2005; INCREASED TO 30 MG ON 08-APR-2005
     Route: 048
     Dates: start: 20050309, end: 20050526

REACTIONS (6)
  - BLISTER [None]
  - ERYTHEMA [None]
  - EXCORIATION [None]
  - NEUTROPENIA [None]
  - PRURITUS [None]
  - PSORIASIS [None]
